FAERS Safety Report 6267963-3 (Version None)
Quarter: 2009Q3

REPORT INFORMATION
  Report Type: 
  Country: None (occurrence: None)
  Receive Date: 20090713
  Receipt Date: 20090630
  Transmission Date: 20100115
  Serious: Yes (Hospitalization)
  Sender: FDA-Public Use
  Company Number: 2009-189973-NL

PATIENT
  Age: 33 Year
  Sex: Female
  Weight: 77.1 kg

DRUGS (3)
  1. NUVARING [Suspect]
     Indication: CONTRACEPTION
     Dates: start: 20061006, end: 20070408
  2. ADVIL [Concomitant]
  3. TYLENOL [Concomitant]

REACTIONS (5)
  - ARTHRALGIA [None]
  - DEEP VEIN THROMBOSIS [None]
  - MUSCLE SPASMS [None]
  - PLANTAR FASCIITIS [None]
  - PULMONARY EMBOLISM [None]
